FAERS Safety Report 11376918 (Version 1)
Quarter: 2015Q3

REPORT INFORMATION
  Report Type: Spontaneous
  Country: NL (occurrence: NL)
  Receive Date: 20150813
  Receipt Date: 20150813
  Transmission Date: 20151125
  Serious: Yes (Other)
  Sender: FDA-Public Use
  Company Number: NL-ELI_LILLY_AND_COMPANY-NL201508000360

PATIENT
  Age: 27 Year
  Sex: Female
  Weight: 115 kg

DRUGS (3)
  1. PROZAC [Suspect]
     Active Substance: FLUOXETINE HYDROCHLORIDE
     Indication: POST-TRAUMATIC STRESS DISORDER
     Dosage: 30 MG, QD
     Route: 048
     Dates: start: 20061015
  2. MIRTAZAPINE. [Concomitant]
     Active Substance: MIRTAZAPINE
     Indication: POST-TRAUMATIC STRESS DISORDER
     Dosage: 7.5 MG, QD
     Route: 048
     Dates: start: 20061015
  3. MIRTAZAPINE. [Concomitant]
     Active Substance: MIRTAZAPINE
     Dosage: 1 DF, UNKNOWN
     Route: 065

REACTIONS (22)
  - Hallucination [Unknown]
  - Myalgia [Unknown]
  - Muscle tightness [Unknown]
  - Tension [Unknown]
  - Restlessness [Unknown]
  - Off label use [Unknown]
  - Suicidal ideation [Unknown]
  - Fatigue [Unknown]
  - Akathisia [Unknown]
  - Feeling cold [Unknown]
  - Somnolence [Unknown]
  - Feeling hot [Unknown]
  - Tremor [Unknown]
  - Yawning [Unknown]
  - Pollakiuria [Unknown]
  - Self injurious behaviour [Unknown]
  - Muscle contractions involuntary [Unknown]
  - Hyperhidrosis [Unknown]
  - Anxiety [Unknown]
  - Abnormal dreams [Unknown]
  - Dry mouth [Unknown]
  - Decreased appetite [Unknown]

NARRATIVE: CASE EVENT DATE: 20061015
